FAERS Safety Report 18823395 (Version 1)
Quarter: 2021Q1

REPORT INFORMATION
  Report Type: Report from Study
  Country: CA (occurrence: CA)
  Receive Date: 20210202
  Receipt Date: 20210202
  Transmission Date: 20210419
  Serious: Yes (Life-Threatening, Hospitalization)
  Sender: FDA-Public Use
  Company Number: NVSC2020CA277633

PATIENT
  Age: 57 Year
  Sex: Female

DRUGS (4)
  1. ENOXAPARIN [Concomitant]
     Active Substance: ENOXAPARIN
     Indication: PRODUCT USED FOR UNKNOWN INDICATION
     Dosage: 30 MG, QD AFTER SURGERY FOR A MONTH
     Route: 065
  2. SANDOSTATIN [Suspect]
     Active Substance: OCTREOTIDE ACETATE
     Indication: NEUROENDOCRINE CARCINOMA
     Dosage: 100 UG (TEST DOSE) ( TO OVERLAP WITH FIRST LAR)
     Route: 058
     Dates: start: 20130621, end: 20130621
  3. SANDOSTATIN [Suspect]
     Active Substance: OCTREOTIDE ACETATE
     Dosage: 1 DF (12 PLUS)
     Route: 058
     Dates: start: 20201007
  4. SANDOSTATIN [Suspect]
     Active Substance: OCTREOTIDE ACETATE
     Dosage: UNK (TO OVERLAP WITH FIRST LAR)
     Route: 058
     Dates: start: 20201107

REACTIONS (6)
  - Illness [Unknown]
  - Near death experience [Unknown]
  - Intestinal obstruction [Unknown]
  - Blood pressure increased [Unknown]
  - Weight decreased [Unknown]
  - Alopecia [Unknown]

NARRATIVE: CASE EVENT DATE: 202010
